FAERS Safety Report 5470810-0 (Version None)
Quarter: 2007Q3

REPORT INFORMATION
  Report Type: 
  Country: None (occurrence: None)
  Receive Date: 20070928
  Receipt Date: 20070918
  Transmission Date: 20080115
  Serious: Yes (Hospitalization, Other)
  Sender: FDA-Public Use
  Company Number: US-AMGEN-KDL203752

PATIENT
  Sex: Male

DRUGS (2)
  1. ENBREL [Suspect]
     Indication: RHEUMATOID ARTHRITIS
     Route: 058
     Dates: start: 20060921
  2. ENBREL [Suspect]
     Indication: PSORIASIS

REACTIONS (14)
  - ABDOMINAL PAIN UPPER [None]
  - CARDIAC DISORDER [None]
  - DYSPNOEA [None]
  - EAR INFECTION [None]
  - EMPHYSEMA [None]
  - HAEMOPTYSIS [None]
  - LOSS OF CONSCIOUSNESS [None]
  - PLEURAL EFFUSION [None]
  - PRODUCTIVE COUGH [None]
  - PSORIASIS [None]
  - RHEUMATOID ARTHRITIS [None]
  - RHEUMATOID LUNG [None]
  - SINUSITIS [None]
  - TREMOR [None]
